FAERS Safety Report 14303399 (Version 1)
Quarter: 2017Q4

REPORT INFORMATION
  Report Type: Spontaneous
  Country: JP (occurrence: JP)
  Receive Date: 20171219
  Receipt Date: 20171219
  Transmission Date: 20180321
  Serious: Yes (Other)
  Sender: FDA-Public Use
  Company Number: JP-OTSUKA-2016_016464

PATIENT
  Age: 38 Year
  Sex: Female

DRUGS (8)
  1. LAMICTAL [Concomitant]
     Active Substance: LAMOTRIGINE
     Indication: PRODUCT USED FOR UNKNOWN INDICATION
     Dosage: 100 MG, QD
     Route: 048
     Dates: start: 20121024, end: 20130726
  2. ABILIFY [Suspect]
     Active Substance: ARIPIPRAZOLE
     Indication: SUICIDAL IDEATION
     Dosage: 3 DF, 6, AFTER EACH MEAL, 11 DAYS (SHORT PERIOD)
     Route: 065
     Dates: start: 201302
  3. LAMOTRIGINE. [Concomitant]
     Active Substance: LAMOTRIGINE
     Indication: PRODUCT USED FOR UNKNOWN INDICATION
     Dosage: 100 MG, QD
     Route: 048
     Dates: start: 20121024, end: 20130726
  4. CYMBALTA [Concomitant]
     Active Substance: DULOXETINE HYDROCHLORIDE
     Indication: PRODUCT USED FOR UNKNOWN INDICATION
     Dosage: 40 MG, QD
     Route: 048
     Dates: start: 20121024, end: 20130726
  5. PAXIL [Concomitant]
     Active Substance: PAROXETINE HYDROCHLORIDE
     Indication: PRODUCT USED FOR UNKNOWN INDICATION
     Dosage: 50 MG, QD
     Route: 048
     Dates: start: 20121024, end: 20121221
  6. ABILIFY [Suspect]
     Active Substance: ARIPIPRAZOLE
     Indication: AFFECT LABILITY
     Dosage: 6 MG, QD
     Route: 048
     Dates: start: 20130216, end: 20130726
  7. CYMBALTA [Concomitant]
     Active Substance: DULOXETINE HYDROCHLORIDE
     Indication: PRODUCT USED FOR UNKNOWN INDICATION
     Dosage: 40 MG, QD
     Route: 048
     Dates: start: 20121024, end: 20130726
  8. ABILIFY [Suspect]
     Active Substance: ARIPIPRAZOLE
     Indication: HYPERPHAGIA
     Dosage: 3 MG, QD
     Route: 048
     Dates: start: 20121124, end: 20130215

REACTIONS (8)
  - Physical disability [Unknown]
  - Dyslalia [Unknown]
  - Dysphagia [Unknown]
  - Tremor [Recovered/Resolved]
  - Mastication disorder [Unknown]
  - Off label use [Unknown]
  - Product use in unapproved indication [Unknown]
  - Facial spasm [Recovering/Resolving]

NARRATIVE: CASE EVENT DATE: 20130205
